FAERS Safety Report 13299663 (Version 7)
Quarter: 2017Q3

REPORT INFORMATION
  Report Type: Spontaneous
  Country: KR (occurrence: KR)
  Receive Date: 20170306
  Receipt Date: 20170801
  Transmission Date: 20171127
  Serious: Yes (Hospitalization, Other)
  Sender: FDA-Public Use
  Company Number: KR-009507513-1703KOR001852

PATIENT
  Age: 67 Year
  Sex: Male
  Weight: 57.6 kg

DRUGS (30)
  1. FLUOROURACIL. [Concomitant]
     Active Substance: FLUOROURACIL
     Dosage: 1.66 G ONCE, ROUTE: INFUSION, CYCLE 2
     Dates: start: 20170123, end: 20170123
  2. FLUOROURACIL. [Concomitant]
     Active Substance: FLUOROURACIL
     Dosage: 1.65 QD,  CYCLE 5  (ROUTE: INFUSION)
     Dates: start: 20170306, end: 20170308
  3. CAMPTO [Concomitant]
     Active Substance: IRINOTECAN
     Dosage: 45 MG, ONCE, CYCLE 4 (ROUTE: INFUSION)
     Dates: start: 20170221, end: 20170221
  4. ONSERAN [Concomitant]
     Indication: PROPHYLAXIS OF NAUSEA AND VOMITING
     Dosage: 4 MG, BID
     Route: 048
     Dates: start: 20170123, end: 20170124
  5. FLUOROURACIL. [Concomitant]
     Active Substance: FLUOROURACIL
     Dosage: 1.65 G, QD, CYCLE 4 (ROUTE: INFUSION)
     Dates: start: 20170221, end: 20170222
  6. CAMPTO [Concomitant]
     Active Substance: IRINOTECAN
     Dosage: 45 MG, ONCE, CYCLE 3 (ROUTE: INFUSION)
     Dates: start: 20170206, end: 20170206
  7. DEXAMETHASONE SODIUM PHOSPHATE. [Concomitant]
     Active Substance: DEXAMETHASONE SODIUM PHOSPHATE
     Dosage: 12 MG, QD
     Route: 042
     Dates: start: 20170123, end: 20170124
  8. ONSERAN [Concomitant]
     Dosage: 4 MG, BID
     Route: 048
     Dates: start: 20170221, end: 20170221
  9. EMEND (FOSAPREPITANT DIMEGLUMINE) [Suspect]
     Active Substance: FOSAPREPITANT DIMEGLUMINE
     Indication: PROPHYLAXIS OF NAUSEA AND VOMITING
     Dosage: 150 MG, ONCE
     Route: 042
     Dates: start: 20170124, end: 20170124
  10. EMEND (FOSAPREPITANT DIMEGLUMINE) [Suspect]
     Active Substance: FOSAPREPITANT DIMEGLUMINE
     Dosage: 150 MG, ONCE
     Route: 042
     Dates: start: 20170206, end: 20170206
  11. FLUOROURACIL. [Concomitant]
     Active Substance: FLUOROURACIL
     Dosage: 1.66 G, QD, CYCLE 3  (ROUTE: INFUSION)
     Dates: start: 20170206, end: 20170207
  12. DEXAMETHASONE SODIUM PHOSPHATE. [Concomitant]
     Active Substance: DEXAMETHASONE SODIUM PHOSPHATE
     Dosage: 8 MG, QD
     Route: 042
     Dates: start: 20170221, end: 20170222
  13. DEXAMETHASONE SODIUM PHOSPHATE. [Concomitant]
     Active Substance: DEXAMETHASONE SODIUM PHOSPHATE
     Dosage: 12 MG, QD
     Route: 042
     Dates: start: 20170306
  14. LYRICA [Concomitant]
     Active Substance: PREGABALIN
     Indication: NEURALGIA
     Dosage: 300 MG, BID
     Route: 048
     Dates: start: 20170122
  15. CAMPTO [Concomitant]
     Active Substance: IRINOTECAN
     Indication: GASTRIC CANCER
     Dosage: 245 MG, ONCE, CYCLE 2 (ROUTE: INFUSION)
     Dates: start: 20170123, end: 20170123
  16. CAMPTO [Concomitant]
     Active Substance: IRINOTECAN
     Dosage: 200 MG, ONCE, CYCLE 3 (ROUTE: INFUSION)
     Dates: start: 20170206, end: 20170206
  17. CAMPTO [Concomitant]
     Active Substance: IRINOTECAN
     Dosage: 245 MG, ONCE, CYCLE 5 (ROUTE: INFUSION)
     Dates: start: 20170306, end: 20170306
  18. DEXAMETHASONE SODIUM PHOSPHATE. [Concomitant]
     Active Substance: DEXAMETHASONE SODIUM PHOSPHATE
     Indication: PROPHYLAXIS OF NAUSEA AND VOMITING
     Dosage: 8 MG, ONCE
     Route: 042
     Dates: start: 20170110, end: 20170110
  19. ONSERAN [Concomitant]
     Dosage: 4 MG, BID
     Route: 048
     Dates: start: 20170205, end: 20170207
  20. MACPERAN [Concomitant]
     Active Substance: METOCLOPRAMIDE HYDROCHLORIDE
     Indication: PROPHYLAXIS
     Dosage: 10 MG, TID
     Route: 048
     Dates: start: 20170109
  21. DEXAMETHASONE SODIUM PHOSPHATE. [Concomitant]
     Active Substance: DEXAMETHASONE SODIUM PHOSPHATE
     Dosage: 8 MG, QD
     Route: 042
     Dates: start: 20170206, end: 20170207
  22. FLUOROURACIL. [Concomitant]
     Active Substance: FLUOROURACIL
     Dosage: 1.66 G ONCE, CYCLE 2
     Route: 042
     Dates: start: 20170124, end: 20170124
  23. CAMPTO [Concomitant]
     Active Substance: IRINOTECAN
     Dosage: 200 MG, ONCE, CYCLE 4 (ROUTE: INFUSION)
     Dates: start: 20170221, end: 20170221
  24. ONSERAN [Concomitant]
     Dosage: 4 MG, BID
     Route: 048
     Dates: start: 20170306
  25. EMEND [Concomitant]
     Active Substance: APREPITANT
     Indication: PROPHYLAXIS OF NAUSEA AND VOMITING
     Dosage: 125 MG, QD
     Route: 048
     Dates: start: 20170109
  26. EMEND (FOSAPREPITANT DIMEGLUMINE) [Suspect]
     Active Substance: FOSAPREPITANT DIMEGLUMINE
     Dosage: 150 MG, ONCE
     Route: 042
     Dates: start: 20170221, end: 20170221
  27. FLUOROURACIL. [Concomitant]
     Active Substance: FLUOROURACIL
     Indication: GASTRIC CANCER
     Dosage: 1.66 G, QD, CYCLE 1 (ROUTE: INFUSION)
     Dates: start: 20170109, end: 20170110
  28. CAMPTO [Concomitant]
     Active Substance: IRINOTECAN
     Indication: GASTRIC CANCER
     Dosage: 250 MG, QD, CYCLE 1 (ROUTE: INFUSION)
     Dates: start: 20170109, end: 20170110
  29. EMEND [Concomitant]
     Active Substance: APREPITANT
     Indication: PROPHYLAXIS OF NAUSEA AND VOMITING
     Dosage: 80 MG, QD
     Route: 048
     Dates: start: 20170110
  30. GLIPTIDE [Concomitant]
     Indication: GASTRITIS PROPHYLAXIS
     Dosage: 200 MG, TID
     Route: 048
     Dates: start: 20170122

REACTIONS (1)
  - Pulmonary embolism [Recovering/Resolving]

NARRATIVE: CASE EVENT DATE: 20170220
